FAERS Safety Report 9495068 (Version 2)
Quarter: 2013Q3

REPORT INFORMATION
  Report Type: Report from Study
  Country: CZ (occurrence: CZ)
  Receive Date: 20130903
  Receipt Date: 20130903
  Transmission Date: 20140515
  Serious: Yes (Death, Hospitalization)
  Sender: FDA-Public Use
  Company Number: CZ-EISAI INC-E7389-03624-CLI-CZ

PATIENT
  Age: 60 Year
  Sex: Male

DRUGS (15)
  1. E7389 (BOLD) [Suspect]
     Indication: NON-SMALL CELL LUNG CANCER
     Route: 040
     Dates: start: 20110901, end: 20130220
  2. PEMETREXED [Suspect]
     Indication: NON-SMALL CELL LUNG CANCER
     Route: 040
     Dates: start: 20110901, end: 20130220
  3. BETAXOLOL [Concomitant]
     Indication: CARDIOVASCULAR DISORDER
     Dosage: UNKNOWN
     Route: 048
     Dates: start: 2006
  4. ACIDUM ACETYLSALICYLICUM [Concomitant]
     Indication: CARDIOVASCULAR DISORDER
     Dosage: UNKNOWN
     Route: 048
     Dates: start: 2006, end: 20130123
  5. ACIDUM ACETYLSALICYLICUM [Concomitant]
     Dosage: UNKNOWN
     Route: 048
     Dates: start: 20130131, end: 20130305
  6. RAMIPRIL [Concomitant]
     Indication: HYPERTENSION
     Dosage: UNKNOWN
     Route: 048
     Dates: start: 2006, end: 20130227
  7. RAMIPRIL [Concomitant]
     Dosage: UNKNOWN
     Route: 048
     Dates: start: 20130306
  8. ATORVASTATIN [Concomitant]
     Indication: PROPHYLAXIS
     Route: 048
     Dates: start: 2006, end: 20110915
  9. HYDROCHLOROTHIAZID [Concomitant]
     Indication: HYPERTENSION
     Route: 048
     Dates: start: 2006, end: 20110915
  10. NATRII IBANDRONAS [Concomitant]
     Indication: NON-SMALL CELL LUNG CANCER
     Route: 048
     Dates: start: 20110822, end: 20110915
  11. AMOXICILLINUM [Concomitant]
     Indication: ERYSIPELAS
     Route: 048
     Dates: start: 20110926, end: 20111003
  12. AMOXICILLINUM [Concomitant]
     Indication: OEDEMA
  13. AMLODIPIN [Concomitant]
     Indication: HYPERTENSION
     Route: 048
     Dates: start: 20130121, end: 20130125
  14. AMLODIPIN [Concomitant]
     Route: 048
     Dates: start: 20130306, end: 20130307
  15. MELPERON [Concomitant]
     Indication: NON-SMALL CELL LUNG CANCER
     Route: 048
     Dates: start: 20130306, end: 20130306

REACTIONS (2)
  - Anaemia [Recovered/Resolved]
  - Cardiopulmonary failure [Fatal]
